FAERS Safety Report 10155408 (Version 2)
Quarter: 2014Q2

REPORT INFORMATION
  Report Type: Spontaneous
  Country: US (occurrence: US)
  Receive Date: 20140506
  Receipt Date: 20140515
  Transmission Date: 20141212
  Serious: Yes (Hospitalization, Other)
  Sender: FDA-Public Use
  Company Number: CHPA2014US006075

PATIENT
  Age: 72 Year
  Sex: Female

DRUGS (5)
  1. EXCEDRIN MIGRAINE [Suspect]
     Indication: HEADACHE
     Dosage: 2 DF, UNK
     Route: 048
  2. EXCEDRIN MIGRAINE [Suspect]
     Indication: OFF LABEL USE
  3. EXCEDRIN MIGRAINE [Suspect]
     Indication: MIGRAINE
  4. ACETYLSALICYLIC ACID [Suspect]
  5. NEXIUM//ESOMEPRAZOLE MAGNESIUM [Concomitant]

REACTIONS (4)
  - Blood count abnormal [Unknown]
  - Gastric haemorrhage [Recovered/Resolved]
  - Dysgeusia [Unknown]
  - Headache [Not Recovered/Not Resolved]
